FAERS Safety Report 8196644-4 (Version None)
Quarter: 2012Q1

REPORT INFORMATION
  Report Type: 
  Country: None (occurrence: None)
  Receive Date: 20120229
  Receipt Date: 20111215
  Transmission Date: 20120608
  Serious: Yes (Other)
  Sender: FDA-Public Use
  Company Number: US-2011-10809

PATIENT

DRUGS (1)
  1. SAMSCA [Suspect]
     Indication: HYPONATRAEMIA

REACTIONS (1)
  - RAPID CORRECTION OF HYPONATRAEMIA [None]
